FAERS Safety Report 22200000 (Version 1)
Quarter: 2023Q2

REPORT INFORMATION
  Report Type: Spontaneous
  Country: HR (occurrence: HR)
  Receive Date: 20230412
  Receipt Date: 20230412
  Transmission Date: 20230721
  Serious: Yes (Other)
  Sender: FDA-Public Use
  Company Number: HR-BoehringerIngelheim-2023-BI-229128

PATIENT
  Age: 64 Year
  Sex: Female

DRUGS (3)
  1. NINTEDANIB [Suspect]
     Active Substance: NINTEDANIB
     Indication: Product used for unknown indication
     Dates: start: 202110
  2. NINTEDANIB [Suspect]
     Active Substance: NINTEDANIB
  3. DOCETAXEL [Concomitant]
     Active Substance: DOCETAXEL
     Dates: start: 202110

REACTIONS (4)
  - Disease progression [Unknown]
  - Diarrhoea [Recovered/Resolved]
  - Paraesthesia [Unknown]
  - Neutropenia [Unknown]

NARRATIVE: CASE EVENT DATE: 20230201
